FAERS Safety Report 5352903-1 (Version None)
Quarter: 2007Q2

REPORT INFORMATION
  Report Type: 
  Country: None (occurrence: None)
  Receive Date: 20070611
  Receipt Date: 20070531
  Transmission Date: 20071010
  Serious: Yes (Hospitalization, Other)
  Sender: FDA-Public Use
  Company Number: US-PFIZER INC-2005059852

PATIENT
  Sex: Male
  Weight: 113.4 kg

DRUGS (1)
  1. BEXTRA [Suspect]
     Indication: BACK PAIN
     Route: 048

REACTIONS (2)
  - MYOCARDIAL INFARCTION [None]
  - PANIC ATTACK [None]
